FAERS Safety Report 24291585 (Version 1)
Quarter: 2024Q3

REPORT INFORMATION
  Report Type: Spontaneous
  Country: US (occurrence: None)
  Receive Date: 20240906
  Receipt Date: 20240906
  Transmission Date: 20241017
  Serious: No
  Sender: DOMPE FARMACEUTICI
  Company Number: US-FARMAPROD-202308-202309-2872

PATIENT
  Age: 42 Year
  Sex: Female

DRUGS (25)
  1. OXERVATE [Suspect]
     Active Substance: CENEGERMIN-BKBJ
     Indication: Neurotrophic keratopathy
     Route: 047
     Dates: start: 20230925
  2. BACTRIM DS [Concomitant]
     Active Substance: SULFAMETHOXAZOLE\TRIMETHOPRIM
     Dosage: 800-160 MG
  3. SYMBICORT [Concomitant]
     Active Substance: BUDESONIDE\FORMOTEROL FUMARATE DIHYDRATE
     Dosage: 160-4.5MCG, HYDROFLUOROALKANE, AEROSOL WITH ADAPTER.
  4. SUMATRIPTAN [Concomitant]
     Active Substance: SUMATRIPTAN\SUMATRIPTAN SUCCINATE
  5. SULFASALAZINE [Concomitant]
     Active Substance: SULFASALAZINE
  6. PROTONIX [Concomitant]
     Active Substance: PANTOPRAZOLE SODIUM
  7. OFLOXACIN [Concomitant]
     Active Substance: OFLOXACIN
  8. METOPROLOL SUCCINATE [Concomitant]
     Active Substance: METOPROLOL SUCCINATE
  9. ATIVAN [Concomitant]
     Active Substance: LORAZEPAM
  10. XIIDRA [Concomitant]
     Active Substance: LIFITEGRAST
  11. LACTOBACILLUS 1MM CEL [Concomitant]
     Dosage: 1MM CEL
  12. IPRATROPIUM BROMIDE [Concomitant]
     Active Substance: IPRATROPIUM BROMIDE\IPRATROPIUM BROMIDE ANHYDROUS
  13. IBUPROFEN [Concomitant]
     Active Substance: IBUPROFEN
  14. MUCINEX [Concomitant]
     Active Substance: GUAIFENESIN
     Dosage: 12 HOURS.
  15. MARINOL [Concomitant]
     Active Substance: DRONABINOL
  16. AMITRIPTYLINE HYDROCHLORIDE [Concomitant]
     Active Substance: AMITRIPTYLINE HYDROCHLORIDE
  17. TYLENOL [Concomitant]
     Active Substance: ACETAMINOPHEN
  18. LOVENOX [Concomitant]
     Active Substance: ENOXAPARIN SODIUM
  19. SOLU-MEDROL [Concomitant]
     Active Substance: METHYLPREDNISOLONE SODIUM SUCCINATE
     Dosage: 500 MG/4ML VIAL
  20. DRONABINOL [Concomitant]
     Active Substance: DRONABINOL
  21. SENOKOT-S [Concomitant]
     Active Substance: DOCUSATE SODIUM\SENNOSIDES
     Dosage: 8.6MG-50MG
  22. MINOCYCLINE HYDROCHLORIDE [Concomitant]
     Active Substance: MINOCYCLINE HYDROCHLORIDE
  23. FLONASE ALLERGY RELIEF [Concomitant]
     Active Substance: FLUTICASONE PROPIONATE
  24. LATANOPROST [Concomitant]
     Active Substance: LATANOPROST
  25. PREDNISONE [Concomitant]
     Active Substance: PREDNISONE
     Route: 048

REACTIONS (1)
  - Periorbital pain [Unknown]

NARRATIVE: CASE EVENT DATE: 20230925
